FAERS Safety Report 7270918-3 (Version None)
Quarter: 2011Q1

REPORT INFORMATION
  Report Type: 
  Country: None (occurrence: None)
  Receive Date: 20110202
  Receipt Date: 20110124
  Transmission Date: 20110831
  Serious: Yes (Hospitalization)
  Sender: FDA-Public Use
  Company Number: IL-ASTRAZENECA-2011SE04115

PATIENT
  Age: 74 Year
  Sex: Female

DRUGS (16)
  1. CRESTOR [Suspect]
     Route: 048
  2. APIXABAN [Suspect]
     Indication: THROMBOSIS PROPHYLAXIS
     Route: 048
     Dates: start: 20101209, end: 20101224
  3. ETODOLAC [Suspect]
     Route: 065
  4. FOSALAN [Concomitant]
     Dates: start: 20050726
  5. APIXABAN [Suspect]
     Route: 048
     Dates: start: 20101224, end: 20110106
  6. ENOXAPARIN [Suspect]
     Indication: THROMBOSIS PROPHYLAXIS
     Route: 058
     Dates: start: 20101209, end: 20101215
  7. PLACEBO [Suspect]
     Indication: THROMBOSIS PROPHYLAXIS
     Route: 065
     Dates: start: 20101209, end: 20101201
  8. SINGULAIR [Concomitant]
     Dates: start: 20101215
  9. CARTIA XT [Concomitant]
     Dates: start: 20060907
  10. PRILOSEC [Concomitant]
     Dates: start: 20101210
  11. PREDNISONE [Concomitant]
     Dates: start: 20101214
  12. FUSID [Concomitant]
     Dates: start: 20100829, end: 20101224
  13. AMLODIPINE [Concomitant]
     Dates: start: 20101215
  14. AEROVENT [Concomitant]
     Dates: start: 20101223, end: 20101229
  15. DERALIN [Concomitant]
     Dates: start: 20101210
  16. FLUTICASONE PROPIONATE [Concomitant]
     Dates: start: 20101223, end: 20101229

REACTIONS (3)
  - LIVER FUNCTION TEST ABNORMAL [None]
  - PERIPHERAL EMBOLISM [None]
  - CELLULITIS [None]
